FAERS Safety Report 6750413-8 (Version None)
Quarter: 2010Q2

REPORT INFORMATION
  Report Type: 
  Country: None (occurrence: None)
  Receive Date: 20100601
  Receipt Date: 20100519
  Transmission Date: 20101027
  Serious: Yes (Hospitalization, Other)
  Sender: FDA-Public Use
  Company Number: CA-ELI_LILLY_AND_COMPANY-CA201005007010

PATIENT
  Age: 82 Year
  Sex: Female
  Weight: 60 kg

DRUGS (14)
  1. ZYPREXA [Suspect]
     Indication: HALLUCINATION
     Dosage: 2.5 MG, 2/D
     Dates: start: 20080213, end: 20080215
  2. ZYPREXA ZYDIS [Suspect]
     Indication: HALLUCINATION
     Dosage: 5 MG, AS NEEDED
     Route: 048
     Dates: start: 20080213, end: 20080215
  3. CEFOTAXIME [Concomitant]
     Dosage: 2 G, EVERY 8 HRS
     Route: 042
  4. AZITHROMYCIN [Concomitant]
     Dosage: 500 MG, DAILY (1/D)
     Route: 048
  5. FUROSEMIDE [Concomitant]
     Dosage: 40 MG, DAILY (1/D)
     Route: 048
  6. IRON SULFATETHIAMIN COMPOUND TAB [Concomitant]
     Dosage: 300 MG, 2/D
     Route: 048
  7. ACETAMINOPHEN [Concomitant]
     Dosage: UNK, AS NEEDED
     Route: 048
  8. SALBUTAMOL [Concomitant]
     Dosage: 200 UG, 4/D
  9. INSULIN ZINC SUSPENSION [Concomitant]
     Dosage: UNK, AS NEEDED
  10. POTASSIUM [Concomitant]
     Dosage: 20 MEQ, 2/D
     Route: 048
  11. WARFARIN [Concomitant]
     Dosage: 2 MG, DAILY (1/D)
     Route: 048
  12. OXAZEPAM [Concomitant]
     Dosage: 15 MG, UNK
     Route: 048
  13. RAMIPRIL [Concomitant]
     Dosage: 5 MG, DAILY (1/D)
     Route: 048
  14. DIGOXIN [Concomitant]
     Dosage: 0.125 MG, DAILY (1/D)
     Route: 048

REACTIONS (1)
  - LIPASE INCREASED [None]
